FAERS Safety Report 13821382 (Version 1)
Quarter: 2017Q3

REPORT INFORMATION
  Report Type: Spontaneous
  Country: GB (occurrence: GB)
  Receive Date: 20170801
  Receipt Date: 20170801
  Transmission Date: 20171127
  Serious: Yes (Other)
  Sender: FDA-Public Use
  Company Number: GB-TEVA-790088ACC

PATIENT
  Sex: Female

DRUGS (1)
  1. COPAXONE [Suspect]
     Active Substance: GLATIRAMER ACETATE
     Dosage: 40 MG/ML
     Route: 058

REACTIONS (3)
  - Maternal exposure during pregnancy [Unknown]
  - Multiple sclerosis relapse [Recovered/Resolved]
  - Abortion spontaneous [Unknown]
